FAERS Safety Report 11699011 (Version 5)
Quarter: 2016Q1

REPORT INFORMATION
  Report Type: Report from Study
  Country: CO (occurrence: CO)
  Receive Date: 20151104
  Receipt Date: 20160226
  Transmission Date: 20160525
  Serious: Yes (Hospitalization, Other)
  Sender: FDA-Public Use
  Company Number: CO-ALEXION PHARMACEUTICALS INC-A201503402

PATIENT
  Age: 67 Year
  Sex: Male

DRUGS (2)
  1. SOLIRIS [Suspect]
     Active Substance: ECULIZUMAB
     Dosage: 900 MG, Q2W
     Route: 042
     Dates: start: 20150629
  2. SOLIRIS [Suspect]
     Active Substance: ECULIZUMAB
     Indication: PAROXYSMAL NOCTURNAL HAEMOGLOBINURIA
     Dosage: 600 MG, QW
     Route: 042
     Dates: start: 20150417, end: 20150508

REACTIONS (17)
  - Dysphagia [Unknown]
  - Urinary tract discomfort [Unknown]
  - Chest pain [Not Recovered/Not Resolved]
  - Acute kidney injury [Recovering/Resolving]
  - Urinary tract infection [Not Recovered/Not Resolved]
  - Haemoglobinuria [Recovered/Resolved]
  - Anuria [Recovered/Resolved]
  - Haemoglobin decreased [Recovered/Resolved]
  - Asthenia [Recovered/Resolved]
  - Haemoglobinuria [Unknown]
  - Angina unstable [Not Recovered/Not Resolved]
  - Haemoglobin decreased [Unknown]
  - Blood urea increased [Recovering/Resolving]
  - Chest pain [Not Recovered/Not Resolved]
  - Chromaturia [Unknown]
  - Blood creatinine abnormal [Recovering/Resolving]
  - Myalgia [Recovered/Resolved]

NARRATIVE: CASE EVENT DATE: 20150828
